FAERS Safety Report 6449263-1 (Version None)
Quarter: 2009Q4

REPORT INFORMATION
  Report Type: 
  Country: None (occurrence: None)
  Receive Date: 20091113
  Receipt Date: 20080818
  Transmission Date: 20100525
  Serious: Yes (Hospitalization)
  Sender: FDA-Public Use
  Company Number: 200813958

PATIENT

DRUGS (1)
  1. VIVAGLOBIN [Suspect]
     Indication: HYPOGAMMAGLOBULINAEMIA
     Dosage: 9.44 G Q1W SC
     Route: 058
     Dates: start: 20080801, end: 20080801

REACTIONS (1)
  - DYSPNOEA [None]
